FAERS Safety Report 7982329-3 (Version None)
Quarter: 2011Q4

REPORT INFORMATION
  Report Type: 
  Country: None (occurrence: None)
  Receive Date: 20111215
  Receipt Date: 20111201
  Transmission Date: 20120403
  Serious: Yes (Hospitalization)
  Sender: FDA-Public Use
  Company Number: PHHY2011CA13755

PATIENT
  Sex: Female

DRUGS (1)
  1. SANDOSTATIN LAR [Suspect]
     Indication: ANGIODYSPLASIA
     Dosage: 10 MG, QMO
     Route: 030
     Dates: start: 20100622

REACTIONS (5)
  - INJECTION SITE HAEMORRHAGE [None]
  - CHEST PAIN [None]
  - HAEMOGLOBIN ABNORMAL [None]
  - BLOOD PRESSURE ABNORMAL [None]
  - ANAEMIA [None]
